FAERS Safety Report 16199053 (Version 1)
Quarter: 2019Q2

REPORT INFORMATION
  Report Type: Report from Study
  Country: ES (occurrence: ES)
  Receive Date: 20190415
  Receipt Date: 20190415
  Transmission Date: 20190711
  Serious: Yes (Other)
  Sender: FDA-Public Use
  Company Number: ES-ELI_LILLY_AND_COMPANY-ES201904005041

PATIENT
  Sex: Female

DRUGS (8)
  1. LYRICA [Concomitant]
     Active Substance: PREGABALIN
     Indication: PAIN
     Dosage: 1 TABLET, DAILY
  2. EFFERALGAN [PARACETAMOL] [Concomitant]
     Indication: PAIN
     Dosage: UNK
  3. FUROSEMIDA [FUROSEMIDE] [Concomitant]
     Indication: URINE OUTPUT DECREASED
     Dosage: 1 TABLET, DAILY
     Dates: start: 201903
  4. DEMILOS [Concomitant]
     Active Substance: CALCIUM CARBONATE\CHOLECALCIFEROL
     Indication: BONE DISORDER
     Dosage: 1 TABLET, DAILY
  5. TERIPARATIDE [Suspect]
     Active Substance: TERIPARATIDE
     Indication: OSTEOPOROSIS
     Dosage: 20 UG, DAILY
     Route: 058
     Dates: start: 20160318
  6. HIDROFEROL [Concomitant]
     Active Substance: CALCIFEDIOL
     Indication: BONE DISORDER
     Dosage: 1 TABLET, MONTHLY (1/M)
  7. TERIPARATIDE [Suspect]
     Active Substance: TERIPARATIDE
     Dosage: 20 UG, DAILY
     Route: 058
     Dates: start: 20190306
  8. ENALAPRIL [Concomitant]
     Active Substance: ENALAPRIL
     Indication: HYPERTENSION
     Dosage: 1 TABLET, DAILY

REACTIONS (10)
  - Blood pressure decreased [Recovered/Resolved]
  - Back pain [Recovering/Resolving]
  - Herpes virus infection [Recovering/Resolving]
  - Breast swelling [Recovering/Resolving]
  - Mobility decreased [Recovering/Resolving]
  - Feeling abnormal [Recovering/Resolving]
  - Pulmonary oedema [Recovering/Resolving]
  - Cold sweat [Recovered/Resolved]
  - Depressed level of consciousness [Recovered/Resolved]
  - Dyspnoea [Recovering/Resolving]
